FAERS Safety Report 5285462-2 (Version None)
Quarter: 2007Q1

REPORT INFORMATION
  Report Type: 
  Country: None (occurrence: None)
  Receive Date: 20070328
  Receipt Date: 20070319
  Transmission Date: 20070707
  Serious: Yes (Life-Threatening, Other)
  Sender: FDA-Public Use
  Company Number: 2007SP002291

PATIENT
  Age: 59 Year
  Sex: Male
  Weight: 100.6985 kg

DRUGS (2)
  1. PEG-INTRON [Suspect]
     Indication: HEPATITIS C
     Dosage: 150 MCG;QW;SC
     Route: 058
     Dates: start: 20061204, end: 20070109
  2. RIBAVIRIN [Suspect]
     Indication: HEPATITIS C
     Dosage: 800 MG;QD;PO
     Route: 048
     Dates: start: 20061204, end: 20070109

REACTIONS (4)
  - BONE MARROW FAILURE [None]
  - DIARRHOEA [None]
  - DRUG INTOLERANCE [None]
  - LIVER TRANSPLANT [None]
